FAERS Safety Report 4721974-5 (Version None)
Quarter: 2005Q3

REPORT INFORMATION
  Report Type: 
  Country: None (occurrence: None)
  Receive Date: 20050720
  Receipt Date: 20050707
  Transmission Date: 20060218
  Serious: Yes (Life-Threatening)
  Sender: FDA-Public Use
  Company Number: GBWYE813507JUL05

PATIENT

DRUGS (1)
  1. GEMTUZUMAB OZOGAMICIN (GEMTUZUMAB OZOGAMICIN, INJECTION, 0) [Suspect]
     Indication: ACUTE MYELOID LEUKAEMIA

REACTIONS (19)
  - ABDOMINAL PAIN LOWER [None]
  - ACTIVATED PARTIAL THROMBOPLASTIN TIME PROLONGED [None]
  - ASCITES [None]
  - COLITIS [None]
  - COLITIS ISCHAEMIC [None]
  - DIARRHOEA [None]
  - ENCEPHALOPATHY [None]
  - ENTEROCOLITIS INFECTIOUS [None]
  - FLUID OVERLOAD [None]
  - HEPATIC FAILURE [None]
  - HEPATITIS FULMINANT [None]
  - INTESTINAL ISCHAEMIA [None]
  - MALAISE [None]
  - OXYGEN SATURATION DECREASED [None]
  - PROTHROMBIN LEVEL INCREASED [None]
  - RESPIRATORY DISORDER [None]
  - SEPSIS [None]
  - VENOOCCLUSIVE DISEASE [None]
  - WEIGHT INCREASED [None]
